FAERS Safety Report 23094819 (Version 1)
Quarter: 2023Q4

REPORT INFORMATION
  Report Type: Spontaneous
  Country: US (occurrence: None)
  Receive Date: 20231018
  Receipt Date: 20231018
  Transmission Date: 20240110
  Serious: No
  Sender: FDA-Public Use
  Company Number: None

PATIENT
  Age: 19 Year
  Sex: Male
  Weight: 59.42 kg

DRUGS (1)
  1. HUMIRA [Suspect]
     Active Substance: ADALIMUMAB
     Indication: Psoriasis
     Dosage: OTHER QUANTITY : 80MG;40MG;?OTHER FREQUENCY : DAY 3; DAY 8;?80 MG ON DAY , 40 MG ON DAY A ND THEREAF
     Route: 058
     Dates: start: 202307

REACTIONS (2)
  - Influenza [None]
  - Therapy interrupted [None]
